FAERS Safety Report 8973722 (Version 3)
Quarter: 2013Q1

REPORT INFORMATION
  Report Type: Spontaneous
  Country: US (occurrence: US)
  Receive Date: 20121218
  Receipt Date: 20130327
  Transmission Date: 20140127
  Serious: Yes (Death, Hospitalization, Other)
  Sender: FDA-Public Use
  Company Number: US-INCYTE CORPORATION-2012IN002585

PATIENT
  Age: 82 Year
  Sex: Male

DRUGS (12)
  1. JAKAFI [Suspect]
     Indication: POLYCYTHAEMIA VERA
     Dosage: 20 MG, BID
     Route: 048
     Dates: start: 20120124, end: 20120425
  2. JAKAFI [Suspect]
     Dosage: 10 MG, QD
     Route: 048
     Dates: start: 20120608, end: 20120926
  3. JAKAFI [Suspect]
     Dosage: 10 MG ALTERNATING WITH 20 MG DAILY
     Route: 048
     Dates: start: 20120927
  4. HYDREA [Concomitant]
     Dosage: NOT SPECIFIED
     Dates: end: 201111
  5. HYDREA [Concomitant]
     Dosage: 500 MG, QD
     Route: 048
     Dates: start: 20121031
  6. DILACOR XR [Concomitant]
     Dosage: 90 DAILY
  7. ASA [Concomitant]
  8. NTG [Concomitant]
     Dosage: PRN
  9. TAGAMET [Concomitant]
  10. ARANESP [Concomitant]
  11. LOVASTATIN [Concomitant]
     Dosage: QD
  12. VENOFER [Concomitant]
     Dosage: X 6 DOSES
     Route: 042
     Dates: start: 20120518

REACTIONS (6)
  - Death [Fatal]
  - Malaise [Unknown]
  - Pleural effusion [Unknown]
  - Leukaemia [Unknown]
  - Anaemia [Unknown]
  - Thrombocytopenia [Unknown]
